FAERS Safety Report 4500435-2 (Version None)
Quarter: 2004Q3

REPORT INFORMATION
  Report Type: 
  Country: None (occurrence: None)
  Receive Date: 20040928
  Receipt Date: 20040723
  Transmission Date: 20050211
  Serious: No
  Sender: FDA-Public Use
  Company Number: 04P-163-0268346-00

PATIENT
  Age: 68 Year
  Sex: Female
  Weight: 77.1115 kg

DRUGS (8)
  1. HUMIRA [Suspect]
     Indication: RHEUMATOID ARTHRITIS
     Dosage: 40 MG, 1 IN 2 WK, SUBCUTANEOUS
     Route: 058
     Dates: start: 20040720
  2. COLCHICINE [Concomitant]
  3. METHOTREXATE [Concomitant]
  4. PREDNISONE [Concomitant]
  5. BUCINDOLOL HYDROCHLORIDE [Concomitant]
  6. VERAPAMIL [Concomitant]
  7. LEFLUNOMIDE [Concomitant]
  8. LORATADINE [Concomitant]

REACTIONS (2)
  - INJECTION SITE PAIN [None]
  - NAUSEA [None]
